FAERS Safety Report 10082591 (Version 3)
Quarter: 2014Q2

REPORT INFORMATION
  Report Type: Spontaneous
  Country: JP (occurrence: JP)
  Receive Date: 20140416
  Receipt Date: 20140422
  Transmission Date: 20141212
  Serious: Yes (Life-Threatening, Hospitalization, Other)
  Sender: FDA-Public Use
  Company Number: JP-PFIZER INC-2014076782

PATIENT
  Age: 77 Year
  Sex: Female
  Weight: 47 kg

DRUGS (25)
  1. LYRICA [Suspect]
     Dosage: 75 MG, 2X/DAY
     Route: 048
     Dates: end: 20140213
  2. THYRADIN S [Concomitant]
     Indication: HYPOTHYROIDISM
     Dosage: 25 UG, 1X/DAY
     Route: 048
     Dates: start: 20140203
  3. ONE-ALPHA [Concomitant]
     Indication: OSTEOPOROSIS
     Dosage: 10 UG, 1X/DAY
     Route: 048
     Dates: start: 20140203
  4. ADEFURONIC [Concomitant]
  5. FOSAMAC [Concomitant]
     Indication: OSTEOPOROSIS
     Dosage: ONCE WEEKLY
     Route: 048
     Dates: start: 20140203
  6. CRESTOR [Concomitant]
     Dosage: 2.5 MG, DAILY
     Route: 048
  7. CRESTOR [Concomitant]
     Dosage: 2.5 MG, 2X/DAY
     Route: 048
  8. ACINON [Concomitant]
     Dosage: 75 MG, DAILY
     Route: 048
  9. ACINON [Concomitant]
     Dosage: 75 MG, 2X/DAY
     Route: 048
  10. TENELIA [Concomitant]
     Dosage: 20 MG, 1X/DAY
     Route: 048
  11. LASIX [Concomitant]
     Dosage: 20 MG, DAILY
  12. LASIX [Concomitant]
     Dosage: 10 MG, 1X/DAY
     Route: 048
  13. METHAPHYLLIN [Concomitant]
     Dosage: 3 G, 1X/DAY
     Route: 048
  14. OHNESMIN [Concomitant]
     Dosage: 0.3 G, 3X/DAY
     Route: 048
  15. ALANTA SF [Concomitant]
     Dosage: 3 DF, DAILY
  16. ALANTA SF [Concomitant]
     Dosage: 100 MG, 3X/DAY
     Route: 048
  17. CARTEOLOL HYDROCHLORIDE [Concomitant]
     Dosage: 6X 5 MG TABLET DAILY
  18. CARTEOLOL HYDROCHLORIDE [Concomitant]
     Dosage: 5 MG, 3X/DAY
     Route: 048
  19. BOIDAN [Concomitant]
     Dosage: 100 MG, 3X/DAY
     Route: 048
  20. CLOTIAZEPAM [Concomitant]
     Dosage: 3 DF, DAILY
  21. CLOTIAZEPAM [Concomitant]
     Dosage: 5 MG, 3X/DAY
     Route: 048
  22. JUVELA [Concomitant]
     Dosage: 50 MG, 3X/DAY
     Route: 048
  23. TOLEDOMIN [Concomitant]
     Dosage: 12.5 MG, 3X/DAY
     Route: 048
  24. PROMAC D [Concomitant]
     Indication: GASTRITIS
     Dosage: 75 MG, 2X/DAY
     Route: 048
     Dates: start: 20140203
  25. BIODIASTASE 2000 W/CALCIUM CARBONAT/06382801/ [Concomitant]
     Dosage: 0.2 G, 3X/DAY
     Route: 048

REACTIONS (6)
  - Cardiac failure congestive [Recovered/Resolved]
  - Generalised oedema [Recovered/Resolved]
  - Hepatic congestion [Unknown]
  - Liver disorder [Recovered/Resolved]
  - Hypoxia [Unknown]
  - Fatigue [Unknown]
